FAERS Safety Report 25082034 (Version 4)
Quarter: 2025Q2

REPORT INFORMATION
  Report Type: Spontaneous
  Country: SE (occurrence: SE)
  Receive Date: 20250317
  Receipt Date: 20250428
  Transmission Date: 20250716
  Serious: Yes (Hospitalization, Other)
  Sender: TAKEDA
  Company Number: SE-TAKEDA-2025TUS024933

PATIENT
  Age: 48 Year
  Sex: Female
  Weight: 59 kg

DRUGS (11)
  1. VONICOG ALFA [Suspect]
     Active Substance: VONICOG ALFA
     Indication: Haemostasis
  2. VONICOG ALFA [Suspect]
     Active Substance: VONICOG ALFA
     Indication: Von Willebrand^s disease
  3. VONICOG ALFA [Suspect]
     Active Substance: VONICOG ALFA
     Indication: Hysterectomy
  4. VONICOG ALFA [Suspect]
     Active Substance: VONICOG ALFA
  5. VONICOG ALFA [Suspect]
     Active Substance: VONICOG ALFA
  6. VONICOG ALFA [Suspect]
     Active Substance: VONICOG ALFA
  7. VONICOG ALFA [Suspect]
     Active Substance: VONICOG ALFA
  8. CYKLOKAPRON [Suspect]
     Active Substance: TRANEXAMIC ACID
     Indication: Haemostasis
     Dosage: 1000 MILLIGRAM, Q8HR
     Dates: start: 20250227
  9. CYKLOKAPRON [Suspect]
     Active Substance: TRANEXAMIC ACID
     Indication: Hysterectomy
  10. CYKLOKAPRON [Suspect]
     Active Substance: TRANEXAMIC ACID
  11. CYKLOKAPRON [Suspect]
     Active Substance: TRANEXAMIC ACID

REACTIONS (3)
  - Pulmonary embolism [Recovering/Resolving]
  - Procedural pain [Recovering/Resolving]
  - Bedridden [Recovering/Resolving]

NARRATIVE: CASE EVENT DATE: 20250305
